FAERS Safety Report 12945205 (Version 1)
Quarter: 2016Q4

REPORT INFORMATION
  Report Type: Spontaneous
  Country: JP (occurrence: JP)
  Receive Date: 20161115
  Receipt Date: 20161115
  Transmission Date: 20170207
  Serious: Yes (Hospitalization)
  Sender: FDA-Public Use
  Company Number: JP-TEVA-2016-001614

PATIENT
  Age: 74 Year
  Sex: Female

DRUGS (8)
  1. BENET TABLET 75MG [Suspect]
     Active Substance: RISEDRONATE SODIUM
     Indication: OSTEOPOROSIS
     Route: 048
     Dates: start: 20160701, end: 20160701
  2. RINDERON A [Concomitant]
     Active Substance: BETAMETHASONE SODIUM PHOSPHATE\NEOMYCIN SULFATE
  3. CRAVIT [Concomitant]
     Active Substance: LEVOFLOXACIN
  4. BENIDIPINE HYDROCHLORIDE [Concomitant]
     Active Substance: BENIDIPINE HYDROCHLORIDE
  5. EDIROL [Suspect]
     Active Substance: ELDECALCITOL
     Route: 065
  6. MAINTATE [Concomitant]
     Active Substance: BISOPROLOL FUMARATE
  7. PITAVASTATIN CALCIUM [Concomitant]
     Active Substance: PITAVASTATIN CALCIUM
  8. ETIZOLAM [Concomitant]
     Active Substance: ETIZOLAM
     Dates: start: 20160701

REACTIONS (4)
  - White blood cell count increased [Unknown]
  - C-reactive protein increased [Unknown]
  - Back pain [Unknown]
  - Pyrexia [Unknown]

NARRATIVE: CASE EVENT DATE: 20160701
